FAERS Safety Report 4580545-4 (Version None)
Quarter: 2005Q1

REPORT INFORMATION
  Report Type: 
  Country: None (occurrence: None)
  Receive Date: 20050214
  Receipt Date: 20040407
  Transmission Date: 20050727
  Serious: No
  Sender: FDA-Public Use
  Company Number: US-GLAXOSMITHKLINE-A0506263A

PATIENT
  Age: 67 Year
  Sex: Female

DRUGS (4)
  1. LAMICTAL [Suspect]
     Indication: BIPOLAR DISORDER
     Dosage: 100MG PER DAY
     Route: 048
  2. LEXAPRO [Concomitant]
  3. FIORICET [Concomitant]
  4. SOMA [Concomitant]

REACTIONS (2)
  - ARTHRALGIA [None]
  - FATIGUE [None]
